FAERS Safety Report 9249015 (Version 1)
Quarter: 2013Q2

REPORT INFORMATION
  Report Type: Spontaneous
  Country: US (occurrence: None)
  Receive Date: 20130419
  Receipt Date: 20130419
  Transmission Date: 20140414
  Serious: Yes (Hospitalization)
  Sender: FDA-Public Use
  Company Number: None

PATIENT
  Age: 68 Year
  Sex: Male

DRUGS (3)
  1. REVLIMID [Suspect]
     Indication: PLASMA CELL MYELOMA
     Route: 048
     Dates: start: 201204, end: 201206
  2. ALLOPURIMOL [Concomitant]
  3. VARDENAFIL [Concomitant]

REACTIONS (16)
  - Fatigue [None]
  - Dysphonia [None]
  - Swollen tongue [None]
  - Muscle spasms [None]
  - Dry mouth [None]
  - Hyperhidrosis [None]
  - Arthralgia [None]
  - Feeling hot [None]
  - Hypoaesthesia [None]
  - Asthenia [None]
  - Dizziness [None]
  - Hypotension [None]
  - Pancytopenia [None]
  - Eosinophilia [None]
  - Nausea [None]
  - Neuropathy peripheral [None]
